FAERS Safety Report 8194087-0 (Version None)
Quarter: 2012Q1

REPORT INFORMATION
  Report Type: 
  Country: None (occurrence: None)
  Receive Date: 20120308
  Receipt Date: 20120301
  Transmission Date: 20120608
  Serious: Yes (Hospitalization, Other)
  Sender: FDA-Public Use
  Company Number: SE-ASTRAZENECA-2012SE10769

PATIENT
  Age: 60 Year
  Sex: Female

DRUGS (9)
  1. OMEPRAZOLE [Concomitant]
  2. CETIRIZINE HCL [Concomitant]
  3. FLUCONAZOLE [Suspect]
     Indication: FUNGAL INFECTION
     Route: 048
     Dates: start: 20110801, end: 20120119
  4. OXYCODONE HCL [Concomitant]
  5. POLYETHYLENE GLYCOL [Concomitant]
     Route: 048
  6. OXYCONTIN [Concomitant]
  7. ZOPIKLON [Concomitant]
  8. PREDNISOLONE [Concomitant]
  9. ARIMIDEX [Suspect]
     Indication: BRAIN NEOPLASM MALIGNANT
     Route: 048
     Dates: start: 20110908, end: 20120119

REACTIONS (1)
  - TOXIC EPIDERMAL NECROLYSIS [None]
